FAERS Safety Report 16030070 (Version 1)
Quarter: 2019Q1

REPORT INFORMATION
  Report Type: Spontaneous
  Country: ES (occurrence: ES)
  Receive Date: 20190304
  Receipt Date: 20190304
  Transmission Date: 20190418
  Serious: Yes (Other)
  Sender: FDA-Public Use
  Company Number: ES-MYLANLABS-2019M1018408

PATIENT
  Age: 39 Year
  Sex: Female

DRUGS (2)
  1. ZOLPIDEM [Suspect]
     Active Substance: ZOLPIDEM\ZOLPIDEM TARTRATE
     Indication: INSOMNIA
     Dosage: 2 DOSAGE FORM, QD (2 DF, Q.H.S.)
     Route: 065
  2. ZOLPIDEM [Suspect]
     Active Substance: ZOLPIDEM\ZOLPIDEM TARTRATE
     Indication: MAJOR DEPRESSION

REACTIONS (6)
  - Sleep-related eating disorder [Recovered/Resolved]
  - Abnormal behaviour [Recovered/Resolved]
  - Weight increased [Recovered/Resolved]
  - Abnormal sleep-related event [Recovered/Resolved]
  - Thermal burn [Unknown]
  - Anterograde amnesia [Recovered/Resolved]
